FAERS Safety Report 5858236-9 (Version None)
Quarter: 2008Q3

REPORT INFORMATION
  Report Type: 
  Country: None (occurrence: None)
  Receive Date: 20080826
  Receipt Date: 20080821
  Transmission Date: 20090109
  Serious: Yes (Hospitalization)
  Sender: FDA-Public Use
  Company Number: A0737551A

PATIENT
  Age: 60 Year
  Sex: Female
  Weight: 109.1 kg

DRUGS (7)
  1. AVANDIA [Suspect]
     Route: 048
     Dates: start: 20040201, end: 20070501
  2. LASIX [Concomitant]
     Dates: start: 20040203
  3. FUROSEMIDE [Concomitant]
     Dates: start: 20040503
  4. TORSEMIDE [Concomitant]
     Dates: start: 20061113
  5. CELEBREX [Concomitant]
     Dates: start: 20040203
  6. NITROGLYCERIN [Concomitant]
     Dates: start: 20060830
  7. NITROCOR [Concomitant]
     Dates: start: 20060902

REACTIONS (1)
  - MYOCARDIAL INFARCTION [None]
